FAERS Safety Report 13622795 (Version 2)
Quarter: 2017Q2

REPORT INFORMATION
  Report Type: Report from Study
  Country: US (occurrence: US)
  Receive Date: 20170607
  Receipt Date: 20170609
  Transmission Date: 20170830
  Serious: Yes (Life-Threatening, Hospitalization)
  Sender: FDA-Public Use
  Company Number: US-BAYER-2017-098135

PATIENT
  Sex: Male

DRUGS (2)
  1. CIPROFLOXACIN. [Suspect]
     Active Substance: CIPROFLOXACIN
     Indication: INFECTION PROPHYLAXIS
  2. LIPITOR [Interacting]
     Active Substance: ATORVASTATIN CALCIUM

REACTIONS (3)
  - Rhabdomyolysis [None]
  - Labelled drug-drug interaction medication error [None]
  - Contraindicated product administered [None]
